FAERS Safety Report 15754461 (Version 1)
Quarter: 2018Q4

REPORT INFORMATION
  Report Type: Spontaneous
  Country: FR (occurrence: FR)
  Receive Date: 20181224
  Receipt Date: 20181224
  Transmission Date: 20190205
  Serious: Yes (Hospitalization, Other)
  Sender: FDA-Public Use
  Company Number: FR-AUROBINDO-AUR-APL-2018-059751

PATIENT
  Age: 37 Year
  Sex: Female

DRUGS (10)
  1. ONDANSETRON. [Suspect]
     Active Substance: ONDANSETRON
     Indication: PROPHYLAXIS OF NAUSEA AND VOMITING
     Dosage: 4 MG SB, UNK
     Route: 042
     Dates: start: 20181030
  2. PIPERACILLINE / TAZOBACTAM MYLAN [Suspect]
     Active Substance: PIPERACILLIN SODIUM\TAZOBACTAM SODIUM
     Indication: URINARY TRACT INFECTION
     Dosage: 4 DOSAGE FORM, DAILY
     Route: 042
     Dates: start: 20181030
  3. ONDANSETRON. [Suspect]
     Active Substance: ONDANSETRON
     Dosage: 4 MG SB, UNK
     Route: 048
     Dates: start: 20181030
  4. ATARAX [Suspect]
     Active Substance: HYDROXYZINE HYDROCHLORIDE
     Indication: ANXIETY
     Dosage: 25 MILLIGRAM, DAILY
     Route: 048
     Dates: start: 20181101
  5. PANTOPRAZOLE MYLAN [Suspect]
     Active Substance: PANTOPRAZOLE SODIUM
     Indication: GASTROOESOPHAGEAL REFLUX DISEASE
     Dosage: 20 MILLIGRAM, DAILY
     Route: 048
     Dates: start: 20181030
  6. PANTOPRAZOL ARROW 40 MG  POWDER FOR SOLUTION FOR INJECTION [Suspect]
     Active Substance: PANTOPRAZOLE SODIUM
     Indication: GASTROOESOPHAGEAL REFLUX DISEASE
     Dosage: 40 MILLIGRAM, DAILY
     Route: 042
     Dates: start: 20181030
  7. PHLOROGLUCINOL ARROW [Suspect]
     Active Substance: PHLOROGLUCINOL
     Indication: GASTROINTESTINAL PAIN
     Dosage: 40MG/4ML/AMP, UNK
     Route: 042
     Dates: start: 20181028
  8. SPASFON LYOC [Suspect]
     Active Substance: PHLOROGLUCINOL
     Indication: GASTROINTESTINAL PAIN
     Dosage: 480 MILLIGRAM, DAILY
     Route: 048
     Dates: start: 20181026
  9. PRIMPERAN [Suspect]
     Active Substance: METOCLOPRAMIDE HYDROCHLORIDE
     Indication: PROPHYLAXIS OF NAUSEA AND VOMITING
     Dosage: 10 MILLIGRAM, SB, UNK
     Route: 048
     Dates: start: 20181029
  10. NEFOPAM HYDROCHLORIDE [Suspect]
     Active Substance: NEFOPAM HYDROCHLORIDE
     Indication: PROCEDURAL PAIN
     Dosage: 120 MILLIGRAM, DAILY
     Route: 042
     Dates: start: 20181028

REACTIONS (1)
  - Drug reaction with eosinophilia and systemic symptoms [Recovering/Resolving]

NARRATIVE: CASE EVENT DATE: 20181109
